FAERS Safety Report 22110120 (Version 1)
Quarter: 2023Q1

REPORT INFORMATION
  Report Type: Report from Study
  Country: US (occurrence: US)
  Receive Date: 20230317
  Receipt Date: 20230317
  Transmission Date: 20230418
  Serious: Yes (Death, Other)
  Sender: FDA-Public Use
  Company Number: US-002147023-NVSC2023US042356

PATIENT
  Age: 5 Year
  Sex: Male
  Weight: 15.1 kg

DRUGS (3)
  1. KYMRIAH [Suspect]
     Active Substance: TISAGENLECLEUCEL
     Indication: Acute lymphocytic leukaemia
     Dosage: UNK, ONCE/SINGLE (4.5X10^6 CAR+ VIABLE CELLS/KG)
     Route: 042
     Dates: start: 20221108, end: 20221108
  2. BENADRYL [Concomitant]
     Active Substance: DIPHENHYDRAMINE HYDROCHLORIDE
     Indication: Premedication
     Dosage: 750 MG
     Route: 065
     Dates: start: 20221113, end: 20221113
  3. ERGOCALCIFEROL [Concomitant]
     Active Substance: ERGOCALCIFEROL
     Indication: Vitamin supplementation
     Dosage: 50,000 UNITS
     Route: 065
     Dates: start: 20221128

REACTIONS (48)
  - Bacteraemia [Fatal]
  - Multiple organ dysfunction syndrome [Fatal]
  - Cardiac arrest [Fatal]
  - Cytomegalovirus infection reactivation [Recovered/Resolved]
  - Cytokine release syndrome [Recovered/Resolved]
  - Hyperkalaemia [Recovered/Resolved]
  - Hypotension [Recovered/Resolved]
  - Tachypnoea [Recovered/Resolved]
  - Hypertension [Recovered/Resolved]
  - Decreased appetite [Recovered/Resolved]
  - Hypotension [Recovered/Resolved]
  - Sinus tachycardia [Recovered/Resolved]
  - Tachypnoea [Recovered/Resolved]
  - Platelet count decreased [Recovered/Resolved]
  - Neutrophil count decreased [Recovered/Resolved]
  - White blood cell count decreased [Recovered/Resolved]
  - Lymphocyte count decreased [Recovered/Resolved]
  - Platelet count decreased [Recovered/Resolved]
  - Lymphocyte count decreased [Recovered/Resolved]
  - C-reactive protein increased [Recovered/Resolved]
  - Lymphocyte count decreased [Recovered/Resolved]
  - Platelet count decreased [Not Recovered/Not Resolved]
  - White blood cell count decreased [Recovered/Resolved]
  - White blood cell count decreased [Recovered/Resolved]
  - Anaemia [Recovered/Resolved]
  - Anaemia [Recovered/Resolved]
  - Lymphocyte count decreased [Recovered/Resolved]
  - Blood immunoglobulin G decreased [Recovered/Resolved]
  - Anaemia [Recovered/Resolved]
  - Anaemia [Recovered/Resolved]
  - Anaemia [Recovered/Resolved]
  - White blood cell count decreased [Recovered/Resolved]
  - Neutrophil count decreased [Recovered/Resolved]
  - Anaemia [Recovered/Resolved]
  - Fibrin D dimer increased [Not Recovered/Not Resolved]
  - Anaemia [Not Recovered/Not Resolved]
  - Hypermagnesaemia [Recovered/Resolved]
  - Hypermagnesaemia [Recovered/Resolved]
  - Nausea [Recovered/Resolved]
  - Constipation [Recovered/Resolved]
  - Constipation [Recovered/Resolved]
  - Prothrombin time prolonged [Recovered/Resolved]
  - Agitation [Recovered/Resolved]
  - Agitation [Recovered/Resolved]
  - Agitation [Recovered/Resolved]
  - Sinus tachycardia [Recovered/Resolved]
  - Tachypnoea [Recovered/Resolved]
  - Vitamin D abnormal [Not Recovered/Not Resolved]

NARRATIVE: CASE EVENT DATE: 20221108
